FAERS Safety Report 7098722-X (Version None)
Quarter: 2010Q4

REPORT INFORMATION
  Report Type: 
  Country: None (occurrence: None)
  Receive Date: 20101112
  Receipt Date: 20080404
  Transmission Date: 20110411
  Serious: No
  Sender: FDA-Public Use
  Company Number: US-KINGPHARMUSA00001-K200800414

PATIENT
  Sex: Female

DRUGS (2)
  1. SKELAXIN [Suspect]
     Indication: BACK DISORDER
     Dosage: 400 MG, UNK
     Route: 048
     Dates: start: 20080331, end: 20080401
  2. METHYLPREDNISOLONE [Suspect]
     Indication: BACK DISORDER
     Dosage: UNK, QD
     Route: 048
     Dates: start: 20080331, end: 20080401

REACTIONS (4)
  - EYE IRRITATION [None]
  - EYE PRURITUS [None]
  - HEADACHE [None]
  - SWELLING FACE [None]
